FAERS Safety Report 6198829-5 (Version None)
Quarter: 2009Q2

REPORT INFORMATION
  Report Type: 
  Country: None (occurrence: None)
  Receive Date: 20090522
  Receipt Date: 20090512
  Transmission Date: 20091009
  Serious: Yes (Other)
  Sender: FDA-Public Use
  Company Number: GR-RANBAXY-2006RR-03578

PATIENT

DRUGS (6)
  1. AMIODARONE [Interacting]
     Indication: PALPITATIONS
     Dosage: 450 MG, SINGLE
     Route: 042
  2. AMIODARONE [Interacting]
     Dosage: 900 MG, QD
     Route: 042
  3. ZOLPIDEM [Suspect]
     Indication: INSOMNIA
  4. CAPTOPRIL [Concomitant]
  5. FRUSEMIDE [Concomitant]
  6. WARFARIN SODIUM [Concomitant]

REACTIONS (3)
  - DRUG INTERACTION [None]
  - ELECTROCARDIOGRAM QT PROLONGED [None]
  - TORSADE DE POINTES [None]
